FAERS Safety Report 8036347-X (Version None)
Quarter: 2012Q1

REPORT INFORMATION
  Report Type: 
  Country: None (occurrence: None)
  Receive Date: 20120111
  Receipt Date: 20111208
  Transmission Date: 20120608
  Serious: No
  Sender: FDA-Public Use
  Company Number: US-GLAXOSMITHKLINE-A0957345A

PATIENT
  Age: 67 Year
  Sex: Male

DRUGS (6)
  1. JALYN [Suspect]
     Indication: PROSTATOMEGALY
     Dosage: .5VA PER DAY
     Route: 048
     Dates: start: 20111105
  2. METFORMIN HCL [Concomitant]
  3. UNKNOWN MEDICATION [Concomitant]
  4. VENTOLIN HFA [Concomitant]
  5. METOPROLOL SUCCINATE [Concomitant]
  6. GLYBURIDE [Concomitant]

REACTIONS (2)
  - MUSCLE SPASMS [None]
  - CHEST PAIN [None]
